FAERS Safety Report 18623438 (Version 2)
Quarter: 2021Q1

REPORT INFORMATION
  Report Type: Spontaneous
  Country: DE (occurrence: DE)
  Receive Date: 20201216
  Receipt Date: 20210108
  Transmission Date: 20210419
  Serious: Yes (Other)
  Sender: FDA-Public Use
  Company Number: DE-STEMLINE THERAPEUTICS, INC.-2020ST000080

PATIENT
  Age: 72 Year
  Sex: Male
  Weight: 136 kg

DRUGS (2)
  1. ACETAMINOPHEN. [Concomitant]
     Active Substance: ACETAMINOPHEN
     Dosage: ADMINISTERED BEFORE EACH ELZONRIS?INFUSION
  2. ELZONRIS [Suspect]
     Active Substance: TAGRAXOFUSP-ERZS
     Indication: PRODUCT USED FOR UNKNOWN INDICATION
     Dosage: DAY 1 TO DAY 5 OF A 21?DAY CYCLE
     Route: 042
     Dates: start: 20201123, end: 20201124

REACTIONS (5)
  - Disease progression [Unknown]
  - Inflammation [Recovered/Resolved]
  - Capillary leak syndrome [Recovered/Resolved]
  - Pyrexia [Recovered/Resolved]
  - Hepatic enzyme increased [Recovering/Resolving]

NARRATIVE: CASE EVENT DATE: 2020
